FAERS Safety Report 24718694 (Version 3)
Quarter: 2025Q1

REPORT INFORMATION
  Report Type: Report from Study
  Country: US (occurrence: US)
  Receive Date: 20241210
  Receipt Date: 20250121
  Transmission Date: 20250409
  Serious: Yes (Hospitalization, Other)
  Sender: INCYTE
  Company Number: US-EVENT-000559

PATIENT

DRUGS (3)
  1. JAKAFI [Suspect]
     Active Substance: RUXOLITINIB
     Indication: Myelofibrosis
     Dosage: 10 MILLIGRAM, BID
     Route: 048
     Dates: start: 20241119
  2. JAKAFI [Suspect]
     Active Substance: RUXOLITINIB
     Dosage: 10 MILLIGRAM, BID
     Route: 048
     Dates: start: 20241120
  3. JAKAFI [Suspect]
     Active Substance: RUXOLITINIB
     Dosage: 10 MILLIGRAM, BID
     Route: 065

REACTIONS (21)
  - Abdominal pain upper [Unknown]
  - Cytokine storm [Unknown]
  - Dry mouth [Recovered/Resolved]
  - Heart rate decreased [Unknown]
  - Nocturia [Unknown]
  - Insomnia [Unknown]
  - Blood sodium decreased [Unknown]
  - Vision blurred [Unknown]
  - Therapeutic response unexpected [Unknown]
  - Abdominal discomfort [Unknown]
  - Gastrooesophageal reflux disease [Unknown]
  - Cholelithiasis [Unknown]
  - Dyspepsia [Unknown]
  - Splenomegaly [Unknown]
  - Drug withdrawal syndrome [Unknown]
  - Hepatic enzyme increased [Unknown]
  - JC polyomavirus test positive [Unknown]
  - Product physical issue [Unknown]
  - Headache [Unknown]
  - Dizziness [Unknown]
  - Constipation [Unknown]

NARRATIVE: CASE EVENT DATE: 20241120
